FAERS Safety Report 4829691-8 (Version None)
Quarter: 2005Q4

REPORT INFORMATION
  Report Type: 
  Country: None (occurrence: None)
  Receive Date: 20051027
  Receipt Date: 20041230
  Transmission Date: 20060501
  Serious: Yes (Other)
  Sender: FDA-Public Use
  Company Number: HQWYE196816JUL04

PATIENT
  Age: 56 Year
  Sex: Female
  Weight: 64.47 kg

DRUGS (4)
  1. PREMARIN [Suspect]
     Indication: HORMONE REPLACEMENT THERAPY
     Dosage: ORAL
     Route: 048
     Dates: start: 19961201
  2. PREMPRO [Suspect]
     Indication: MENOPAUSE
  3. ESTRATEST [Concomitant]
  4. PROVERA [Concomitant]

REACTIONS (1)
  - BREAST CANCER [None]
